FAERS Safety Report 18818443 (Version 1)
Quarter: 2021Q1

REPORT INFORMATION
  Report Type: Spontaneous
  Country: US (occurrence: US)
  Receive Date: 20210201
  Receipt Date: 20210201
  Transmission Date: 20210419
  Serious: No
  Sender: FDA-Public Use
  Company Number: US-TEVA-2021-US-1872229

PATIENT
  Age: 62 Year
  Sex: Female

DRUGS (1)
  1. BUPRENORPHINE. [Suspect]
     Active Substance: BUPRENORPHINE
     Route: 065

REACTIONS (10)
  - Renal disorder [Not Recovered/Not Resolved]
  - Therapeutic response decreased [Unknown]
  - Balance disorder [Not Recovered/Not Resolved]
  - Extra dose administered [Unknown]
  - Fall [Not Recovered/Not Resolved]
  - Gait disturbance [Not Recovered/Not Resolved]
  - Vertigo [Not Recovered/Not Resolved]
  - Hepatic pain [Not Recovered/Not Resolved]
  - Eye contusion [Not Recovered/Not Resolved]
  - Hypersomnia [Not Recovered/Not Resolved]
